FAERS Safety Report 20309074 (Version 1)
Quarter: 2022Q1

REPORT INFORMATION
  Report Type: Spontaneous
  Country: US (occurrence: None)
  Receive Date: 20220106
  Receipt Date: 20220106
  Transmission Date: 20220424
  Serious: Yes (Death)
  Sender: FDA-Public Use
  Company Number: None

PATIENT
  Age: 33 Year
  Sex: Male

DRUGS (17)
  1. PULMOZYME [Suspect]
     Active Substance: DORNASE ALFA
     Indication: Cystic fibrosis
     Dosage: OTHER QUANTITY : 2.5 MG/2.5ML;? INHALE ONE VIAL (2.5 MG) VIA NEBULIZER ONCE DAILY?
     Route: 055
     Dates: start: 20211005, end: 20211215
  2. AZITHROMYCIN [Concomitant]
     Active Substance: AZITHROMYCIN
  3. CALCITRIOL CAP [Concomitant]
  4. COMPLETE FORMULATION D300 [Concomitant]
  5. COMPLETE FORMULATION MULT [Concomitant]
  6. IPRATROPIUM BROMIDE/ALBUT [Concomitant]
  7. IPRATROPIUM/SOL ALBUTER [Concomitant]
  8. MEGACE ES SUS [Concomitant]
  9. NEXIUM CAP [Concomitant]
  10. PULMOZYME SOL [Concomitant]
  11. SODIUM CHLORIDE [Concomitant]
     Active Substance: SODIUM CHLORIDE
  12. SUPER B COMP TAB [Concomitant]
  13. TAURINE CAP [Concomitant]
  14. VITAMIN A CAP [Concomitant]
  15. VITAMIN D TAB [Concomitant]
  16. VITAMIN E [Concomitant]
     Active Substance: .ALPHA.-TOCOPHEROL
  17. VITAMIN K TAB [Concomitant]

REACTIONS (1)
  - Death [None]

NARRATIVE: CASE EVENT DATE: 20211215
